FAERS Safety Report 20216783 (Version 1)
Quarter: 2021Q4

REPORT INFORMATION
  Report Type: Spontaneous
  Country: MX (occurrence: None)
  Receive Date: 20211222
  Receipt Date: 20211222
  Transmission Date: 20220303
  Serious: Yes (Death, Other)
  Sender: FDA-Public Use
  Company Number: 2021A795126

PATIENT
  Age: 57 Year
  Sex: Male

DRUGS (3)
  1. OLAPARIB [Suspect]
     Active Substance: OLAPARIB
     Dosage: (2, 150 MG TABLETS) 300 MILLIGRAM EVERY 12 HOURS
     Route: 048
     Dates: start: 20201018
  2. OLAPARIB [Suspect]
     Active Substance: OLAPARIB
     Dosage: 450 MILLIGRAM PER DAY
     Route: 048
     Dates: start: 20201120
  3. OLAPARIB [Suspect]
     Active Substance: OLAPARIB
     Dosage: 300 MILLIGRAM PER DAY
     Route: 048
     Dates: start: 202012

REACTIONS (15)
  - Prostate cancer [Fatal]
  - Thrombocytopenia [Unknown]
  - Neutropenia [Unknown]
  - Anaemia [Unknown]
  - Deep vein thrombosis [Unknown]
  - Pulmonary embolism [Unknown]
  - Leukopenia [Unknown]
  - Fatigue [Unknown]
  - Nausea [Unknown]
  - Vomiting [Unknown]
  - Haemoglobin abnormal [Unknown]
  - White blood cell count abnormal [Unknown]
  - Dizziness [Unknown]
  - Platelet count abnormal [Unknown]
  - Neutrophil count abnormal [Unknown]

NARRATIVE: CASE EVENT DATE: 20201111
